FAERS Safety Report 5161612-3 (Version None)
Quarter: 2006Q4

REPORT INFORMATION
  Report Type: 
  Country: None (occurrence: None)
  Receive Date: 20061121
  Receipt Date: 20061108
  Transmission Date: 20070319
  Serious: Yes (Other)
  Sender: FDA-Public Use
  Company Number: 2006117271

PATIENT
  Age: 84 Year
  Sex: Male
  Weight: 44 kg

DRUGS (15)
  1. ALDACTONE [Suspect]
     Indication: CARDIAC FAILURE
     Dosage: SEE IMAGE
     Route: 048
     Dates: start: 20021029, end: 20060717
  2. ALDACTONE [Suspect]
     Indication: CARDIAC FAILURE
     Dosage: SEE IMAGE
     Route: 048
     Dates: start: 20060718, end: 20060905
  3. BLOPRESS (CANDESARTAN CILEXETIL) [Suspect]
     Indication: CARDIAC FAILURE
     Dosage: 4 MG (4 MG, 1 IN 1 D), ORAL
     Route: 048
     Dates: start: 20050419, end: 20060316
  4. ENALAPRIL MALEATE [Suspect]
     Indication: CARDIAC FAILURE
     Dosage: 5 MG (5 MG, 1 IN 1 D), ORAL
     Route: 048
     Dates: start: 20051025, end: 20060925
  5. LASIX [Suspect]
     Indication: CARDIAC FAILURE
     Dosage: SEE IMAGE
     Route: 048
     Dates: start: 20051029, end: 20060523
  6. LASIX [Suspect]
     Indication: CARDIAC FAILURE
     Dosage: SEE IMAGE
     Route: 048
     Dates: start: 20060718, end: 20060827
  7. LASIX [Suspect]
     Indication: CARDIAC FAILURE
     Dosage: SEE IMAGE
     Route: 048
     Dates: start: 20060828, end: 20060905
  8. LASIX [Suspect]
     Indication: CARDIAC FAILURE
     Dosage: SEE IMAGE
     Route: 048
     Dates: start: 20060912, end: 20060925
  9. DIART (AZOSEMIDE) [Suspect]
     Indication: CARDIAC FAILURE
     Dosage: 30 MG (30 MG, 1 IN 1 D), ORAL
     Route: 048
     Dates: start: 20060523, end: 20060718
  10. IMIDAPRIL HYDROCHLORIDE (IMIDAPRIL HYDROCHLORIDE) [Suspect]
     Indication: CARDIAC FAILURE
     Dosage: 5 MG (5 MG, 1 IN 1 D), ORAL
     Route: 048
     Dates: start: 20060620, end: 20060718
  11. FLUITRAN (TRICHLORMETHIAZIDE) [Suspect]
     Dosage: 1 MG (1 MG, 1 IN 1 D), ORAL
     Route: 048
     Dates: start: 20060905, end: 20060912
  12. DIGOXIN [Suspect]
     Indication: CARDIAC FAILURE
     Dosage: (1 IN 1 D), ORAL
     Route: 048
     Dates: start: 20030121, end: 20060718
  13. WARFARIN SODIUM [Suspect]
     Indication: ATRIAL FIBRILLATION
     Dosage: 1.5 MG (1 IN 1 D), ORAL
     Route: 048
     Dates: start: 20010529
  14. ALLELOCK (OLOPATADINE HYDROCHLORIDE) [Suspect]
     Indication: HYPERSENSITIVITY
     Dosage: 10 MG (5 MG, 2 IN 1 D), ORAL
     Route: 048
     Dates: start: 20060719, end: 20061011
  15. HALCION [Concomitant]

REACTIONS (6)
  - CARDIAC FAILURE CONGESTIVE [None]
  - INFLAMMATION [None]
  - PITTING OEDEMA [None]
  - PYREXIA [None]
  - TOXIC SKIN ERUPTION [None]
  - URINARY TRACT INFECTION [None]
